FAERS Safety Report 22245783 (Version 1)
Quarter: 2023Q2

REPORT INFORMATION
  Report Type: Spontaneous
  Country: US (occurrence: US)
  Receive Date: 20230424
  Receipt Date: 20230424
  Transmission Date: 20230722
  Serious: Yes (Hospitalization, Other)
  Sender: FDA-Public Use
  Company Number: US-SA-SAC20230421000323

PATIENT
  Age: 32 Year
  Sex: Female

DRUGS (10)
  1. ELOCTATE [Suspect]
     Active Substance: EFMOROCTOCOG ALFA
     Indication: Factor VIII deficiency
     Dosage: 5000 UNITS (4500- 5500) SLOW IV EVERY THREE DAYS AS A PROPHYLACTIC DOSE
     Route: 042
     Dates: start: 202212
  2. ELOCTATE [Suspect]
     Active Substance: EFMOROCTOCOG ALFA
     Indication: Factor VIII deficiency
     Dosage: 5000 UNITS (4500- 5500) SLOW IV EVERY THREE DAYS AS A PROPHYLACTIC DOSE
     Route: 042
     Dates: start: 202212
  3. ELOCTATE [Suspect]
     Active Substance: EFMOROCTOCOG ALFA
     Dosage: 5000 UNITS (4500- 5500) SLOW IV EVERY 12 TO 24 HOURS AS NEEDED AS A PROPHYLACTIC DOSE
     Route: 042
  4. ELOCTATE [Suspect]
     Active Substance: EFMOROCTOCOG ALFA
     Dosage: 5000 UNITS (4500- 5500) SLOW IV EVERY 12 TO 24 HOURS AS NEEDED AS A PROPHYLACTIC DOSE
     Route: 042
  5. ELOCTATE [Suspect]
     Active Substance: EFMOROCTOCOG ALFA
     Dosage: 5000 UNITS (4500-5500) SLOW IV BEFORE KNEE REPLACEMENT
     Route: 042
     Dates: start: 202304
  6. ELOCTATE [Suspect]
     Active Substance: EFMOROCTOCOG ALFA
     Dosage: 5000 UNITS (4500-5500) SLOW IV BEFORE KNEE REPLACEMENT
     Route: 042
     Dates: start: 202304
  7. ELOCTATE [Suspect]
     Active Substance: EFMOROCTOCOG ALFA
     Dosage: 4000 UNITS (3600-4400) SLOW IV TWICE DAILY FOR 3 DAYS AFTER KNEE SURGERY
     Route: 042
     Dates: start: 202304
  8. ELOCTATE [Suspect]
     Active Substance: EFMOROCTOCOG ALFA
     Dosage: 4000 UNITS (3600-4400) SLOW IV TWICE DAILY FOR 3 DAYS AFTER KNEE SURGERY
     Route: 042
     Dates: start: 202304
  9. ELOCTATE [Suspect]
     Active Substance: EFMOROCTOCOG ALFA
     Dosage: 5000 UNITS (4500-5500) ONCE DAILY FOR 7 DAYS AND AS NEEDED
     Route: 042
     Dates: start: 202304
  10. ELOCTATE [Suspect]
     Active Substance: EFMOROCTOCOG ALFA
     Dosage: 5000 UNITS (4500-5500) ONCE DAILY FOR 7 DAYS AND AS NEEDED
     Route: 042
     Dates: start: 202304

REACTIONS (2)
  - Post procedural haemorrhage [Unknown]
  - Knee arthroplasty [Unknown]

NARRATIVE: CASE EVENT DATE: 20230404
